FAERS Safety Report 4557068-1 (Version None)
Quarter: 2005Q1

REPORT INFORMATION
  Report Type: 
  Country: None (occurrence: None)
  Receive Date: 20050120
  Receipt Date: 20040929
  Transmission Date: 20050727
  Serious: Yes (Hospitalization)
  Sender: FDA-Public Use
  Company Number: JP-GLAXOSMITHKLINE-B0347024A

PATIENT
  Age: 69 Year
  Sex: Male

DRUGS (9)
  1. VALTREX [Suspect]
     Indication: HERPES ZOSTER
     Route: 048
     Dates: start: 20040919, end: 20040920
  2. TOUGHMAC E [Concomitant]
     Indication: GASTRITIS
     Dosage: 1.5G PER DAY
     Route: 048
  3. ALFAROL [Concomitant]
     Indication: OSTEOPOROSIS
     Dosage: .25MCG PER DAY
     Route: 048
  4. ADALAT CC [Concomitant]
     Indication: HYPERTENSION
     Dosage: 40MG PER DAY
     Route: 048
  5. PRECIPITATED CALCIUM CARBONATE [Concomitant]
     Indication: GASTRITIS
     Dosage: 3000MG PER DAY
     Route: 048
  6. PURSENNID [Concomitant]
     Indication: CONSTIPATION
     Dosage: 36MG PER DAY
     Route: 048
  7. SELBEX [Concomitant]
     Indication: GASTRITIS
     Dosage: 150MG PER DAY
     Route: 048
  8. KEISHI-KA-JUTSUBU-TO [Concomitant]
     Indication: HERPES ZOSTER
     Dosage: 7.5G PER DAY
     Route: 048
     Dates: start: 20040918, end: 20040921
  9. CERCINE [Concomitant]
     Route: 048
     Dates: start: 20040920, end: 20040921

REACTIONS (9)
  - DIZZINESS [None]
  - ENCEPHALOPATHY [None]
  - HAEMODIALYSIS [None]
  - HALLUCINATION [None]
  - HALLUCINATION, AUDITORY [None]
  - OVERDOSE [None]
  - SPEECH DISORDER [None]
  - TINNITUS [None]
  - TOXIC INDUCED ENCEPHALOPATHY [None]
